FAERS Safety Report 24032016 (Version 1)
Quarter: 2024Q2

REPORT INFORMATION
  Report Type: Spontaneous
  Country: US (occurrence: US)
  Receive Date: 20240630
  Receipt Date: 20240630
  Transmission Date: 20240715
  Serious: Yes (Other)
  Sender: FDA-Public Use
  Company Number: US-GLENMARK PHARMACEUTICALS-2024GMK091854

PATIENT

DRUGS (1)
  1. SEVELAMER HYDROCHLORIDE [Suspect]
     Active Substance: SEVELAMER HYDROCHLORIDE
     Indication: Chronic kidney disease
     Dosage: 800 MILLIGRAM, TID
     Route: 048

REACTIONS (2)
  - Oesophagitis [Unknown]
  - Gastrointestinal haemorrhage [Unknown]
